FAERS Safety Report 7249051-2 (Version None)
Quarter: 2011Q1

REPORT INFORMATION
  Report Type: 
  Country: None (occurrence: None)
  Receive Date: 20110128
  Receipt Date: 20100618
  Transmission Date: 20110831
  Serious: Yes (Hospitalization, Other)
  Sender: FDA-Public Use
  Company Number: US-BAYER-201019647NA

PATIENT
  Sex: Female
  Weight: 70 kg

DRUGS (8)
  1. PREVACID [Concomitant]
     Indication: GASTROOESOPHAGEAL REFLUX DISEASE
     Dosage: 30 MG, UNK
     Route: 048
  2. YAZ [Suspect]
     Indication: ORAL CONTRACEPTION
     Route: 048
  3. CELEBREX [Concomitant]
     Indication: BACK PAIN
     Dosage: 100 MG, UNK
     Route: 048
     Dates: start: 20080601
  4. TRAMADOL HCL [Concomitant]
     Dosage: 50 MG, UNK
     Route: 048
     Dates: start: 20091125
  5. ASCORBIC ACID [Concomitant]
     Dosage: UNK
     Dates: start: 20070101, end: 20100101
  6. IBUPROFEN [Concomitant]
     Dosage: UNK
     Dates: start: 20050101, end: 20100101
  7. ANTIMIGRAINE PREPARATIONS [Concomitant]
     Dosage: UNK
     Dates: start: 20080101, end: 20100101
  8. HYDROCODONE BITARTRATE AND ACETAMINOPHEN [Concomitant]
     Dosage: UNK
     Route: 048
     Dates: start: 20091204

REACTIONS (2)
  - GALLBLADDER DISORDER [None]
  - ABDOMINAL PAIN [None]
